FAERS Safety Report 10460153 (Version 1)
Quarter: 2014Q3

REPORT INFORMATION
  Report Type: Spontaneous
  Country: DE (occurrence: DE)
  Receive Date: 20140917
  Receipt Date: 20140917
  Transmission Date: 20150326
  Serious: Yes (Hospitalization, Other)
  Sender: FDA-Public Use
  Company Number: DE-PFIZER INC-2014254193

PATIENT
  Sex: Male
  Weight: 1.97 kg

DRUGS (6)
  1. AMITRIPTYLIN-NEURAXPHARM 100 [Suspect]
     Active Substance: AMITRIPTYLINE
     Indication: DEPRESSION
     Dosage: 100 MG, 1X/DAY, 0. - 28.4. GESTATIONAL WEEK
     Route: 064
  2. VENLAFAXINE HCL [Suspect]
     Active Substance: VENLAFAXINE HYDROCHLORIDE
     Indication: EATING DISORDER
     Dosage: 75 MG, 2X/DAY, 0. - 33.6. GESTATIONAL WEEK
     Route: 064
     Dates: start: 20130127, end: 20130921
  3. VENLAFAXIN DURA 75 RET. [Suspect]
     Active Substance: VENLAFAXINE HYDROCHLORIDE
     Indication: EATING DISORDER
     Dosage: 75 MG, 1X/DAY 0. - 33.6. GESTATIONAL WEEK
     Route: 064
     Dates: start: 20130127, end: 20130921
  4. DOXEPIN [Suspect]
     Active Substance: DOXEPIN
     Indication: ANXIETY DISORDER
     Dosage: 50 MG, 1X/DAY
     Route: 064
     Dates: end: 201308
  5. ZELDOX [Suspect]
     Active Substance: ZIPRASIDONE
     Indication: SCHIZOPHRENIA
     Dosage: 60 MG, 1X/DAY (0. - 33.6. GESTATIONAL WEEK)
     Route: 064
     Dates: start: 20130127, end: 20130921
  6. AMITRIPTYLIN DURA 75 RET. [Suspect]
     Active Substance: AMITRIPTYLINE
     Indication: DEPRESSION
     Dosage: 75 MG, 1X/DAY, 0. - 33.6. GESTATIONAL WEEK
     Route: 064
     Dates: start: 20130127, end: 20130921

REACTIONS (6)
  - Maternal exposure during pregnancy [Unknown]
  - Premature baby [Unknown]
  - Meconium in amniotic fluid [Unknown]
  - Feeding disorder neonatal [Recovered/Resolved]
  - Neonatal respiratory distress syndrome [Recovered/Resolved]
  - Sedation [Unknown]

NARRATIVE: CASE EVENT DATE: 20130921
